FAERS Safety Report 5845501-4 (Version None)
Quarter: 2008Q3

REPORT INFORMATION
  Report Type: 
  Country: None (occurrence: None)
  Receive Date: 20080814
  Receipt Date: 20080806
  Transmission Date: 20090109
  Serious: Yes (Other)
  Sender: FDA-Public Use
  Company Number: GB-ASTRAZENECA-2008GB01496

PATIENT
  Sex: Male

DRUGS (5)
  1. LISINOPRIL [Suspect]
     Dosage: 15MG
     Route: 048
  2. LISINOPRIL [Suspect]
     Dosage: 5MG
     Route: 048
  3. GABAPENTIN [Suspect]
     Route: 048
  4. LYRICA [Suspect]
     Route: 048
  5. ACE INHIBITOR NOS [Concomitant]

REACTIONS (5)
  - BLOOD PRESSURE DECREASED [None]
  - CARDIAC FAILURE [None]
  - DRUG INEFFECTIVE [None]
  - DYSPNOEA [None]
  - SYNCOPE [None]
